FAERS Safety Report 8812169 (Version 2)
Quarter: 2013Q1

REPORT INFORMATION
  Report Type: Spontaneous
  Country: US (occurrence: None)
  Receive Date: 20120925
  Receipt Date: 20130204
  Transmission Date: 20140127
  Serious: Yes (Hospitalization, Other)
  Sender: FDA-Public Use
  Company Number: 2012-001548

PATIENT
  Age: 68 Year
  Sex: Female

DRUGS (14)
  1. ACTONEL (RISEDRONATE SODIUM) TABLET, 150MG [Suspect]
     Indication: OSTEOPOROSIS
     Route: 048
     Dates: start: 20081216
  2. FOSAMAX (ALENDRONATE SODIUM) [Suspect]
     Indication: OSTEOPOROSIS
     Route: 048
     Dates: start: 1996, end: 200506
  3. BONIVA [Suspect]
     Indication: OSTEOPOROSIS
     Dates: start: 20050819, end: 20061101
  4. FOSAMAX PLUS D [Suspect]
     Indication: OSTEOPOROSIS
     Route: 048
     Dates: start: 20051213, end: 20090308
  5. VITAMIN D /00318501/ (COLECALCIFEROL) [Concomitant]
  6. SYNTHROID (LEVOTHYROXINE SODIUM) [Concomitant]
  7. CALTRATE + D (CALCIUM/COLECALCIFEROL) [Concomitant]
  8. LIPITOR (ATORVASTATIN CALCIUM) [Concomitant]
  9. NEXIUM [Concomitant]
  10. AMBIEN (ZOLPIDEM) [Concomitant]
  11. ZEGERID (OMEPRAZOLE) [Concomitant]
  12. LISINOPRIL/HYDROCHLOROTHIAZIDE [Concomitant]
  13. BETOPTIC-S (BETAXOLOL HYDROCHLORIDE) [Concomitant]
  14. ALLEGRA D (FEXOFENADINE HYDROCHLORIDE, PSEUDOEPHEDRIE HYDROCHLORIDE) [Concomitant]

REACTIONS (21)
  - Femur fracture [None]
  - Fracture displacement [None]
  - Comminuted fracture [None]
  - Fall [None]
  - Pain in extremity [None]
  - Stress fracture [None]
  - Pathological fracture [None]
  - Bone disorder [None]
  - Low turnover osteopathy [None]
  - Osteogenesis imperfecta [None]
  - Pain [None]
  - Radius fracture [None]
  - Ulna fracture [None]
  - Staphylococcal infection [None]
  - Wrist fracture [None]
  - Rib fracture [None]
  - Personality disorder [None]
  - Generalised anxiety disorder [None]
  - Dysthymic disorder [None]
  - Postoperative wound infection [None]
  - Wound [None]
